FAERS Safety Report 7298052-7 (Version None)
Quarter: 2011Q1

REPORT INFORMATION
  Report Type: 
  Country: None (occurrence: None)
  Receive Date: 20110217
  Receipt Date: 20110208
  Transmission Date: 20110831
  Serious: Yes (Disabling, Other)
  Sender: FDA-Public Use
  Company Number: FR-AMGEN-FRASP2011006379

PATIENT
  Age: 68 Year
  Sex: Male

DRUGS (5)
  1. KARDEGIC                           /00002703/ [Concomitant]
     Dosage: UNK
  2. CRESTOR [Concomitant]
     Dosage: UNK
  3. STAGID [Concomitant]
     Dosage: UNK
  4. HUMIRA [Suspect]
     Indication: PSORIASIS
     Dosage: 40 MG, ONCE EVERY 15 DAYS
     Route: 058
     Dates: start: 20081001, end: 20100825
  5. ENBREL [Suspect]
     Indication: PSORIASIS
     Dosage: 25 MG, 2X/WEEK
     Route: 058
     Dates: start: 20060201, end: 20081001

REACTIONS (5)
  - BLINDNESS TRANSIENT [None]
  - ANAEMIA [None]
  - LEUKAEMIA PLASMACYTIC [None]
  - ISCHAEMIC STROKE [None]
  - BRONCHITIS [None]
